FAERS Safety Report 7146545-5 (Version None)
Quarter: 2010Q4

REPORT INFORMATION
  Report Type: 
  Country: None (occurrence: None)
  Receive Date: 20101208
  Receipt Date: 20101125
  Transmission Date: 20110411
  Serious: Yes (Other)
  Sender: FDA-Public Use
  Company Number: US-MYLANLABS-2010S1021918

PATIENT
  Sex: Female
  Weight: 2.35 kg

DRUGS (4)
  1. DARUNAVIR ETHANOLATE [Suspect]
     Route: 064
     Dates: start: 20100218
  2. RITONAVIR [Suspect]
     Route: 064
     Dates: start: 20100218
  3. LAMIVUDINE + ZIDOVUDINE [Suspect]
     Route: 064
     Dates: start: 20100112, end: 20100603
  4. ZIDOVUDINE [Suspect]
     Route: 064
     Dates: start: 20100603, end: 20100603

REACTIONS (3)
  - DRUG EXPOSURE DURING PREGNANCY [None]
  - FOETAL GROWTH RESTRICTION [None]
  - PREMATURE BABY [None]
